FAERS Safety Report 4610989-3 (Version None)
Quarter: 2005Q1

REPORT INFORMATION
  Report Type: 
  Country: None (occurrence: None)
  Receive Date: 20050316
  Receipt Date: 20050316
  Transmission Date: 20050727
  Serious: Yes (Hospitalization)
  Sender: FDA-Public Use
  Company Number: None

PATIENT
  Age: 62 Year
  Sex: Male
  Weight: 120.6568 kg

DRUGS (5)
  1. CYTOXAN [Suspect]
     Indication: RENAL CELL CARCINOMA STAGE UNSPECIFIED
     Dosage: PROTOCOL BB-IND 2749
     Dates: start: 20050207
  2. GMCSF [Suspect]
  3. AUTOLOGOUS VACCINE [Suspect]
  4. ALLEGRA [Concomitant]
  5. Q-DRYL [Concomitant]

REACTIONS (1)
  - ANGIONEUROTIC OEDEMA [None]
